FAERS Safety Report 4565561-0 (Version None)
Quarter: 2005Q1

REPORT INFORMATION
  Report Type: 
  Country: None (occurrence: None)
  Receive Date: 20050126
  Receipt Date: 20050110
  Transmission Date: 20050727
  Serious: Yes (Hospitalization)
  Sender: FDA-Public Use
  Company Number: US_0501110053

PATIENT
  Age: 9 Year
  Sex: Male
  Weight: 40 kg

DRUGS (4)
  1. ATOMOXETINE HYDROCHLORIDE [Suspect]
     Indication: ATTENTION DEFICIT/HYPERACTIVITY DISORDER
     Dosage: 20MG/2 DAY
     Dates: start: 20050106, end: 20050108
  2. DEPAKOTE [Concomitant]
  3. GEODON [Concomitant]
  4. ZOLOFT [Concomitant]

REACTIONS (4)
  - ABNORMAL BEHAVIOUR [None]
  - AGGRESSION [None]
  - ANGER [None]
  - IRRITABILITY [None]
